FAERS Safety Report 23534306 (Version 4)
Quarter: 2025Q2

REPORT INFORMATION
  Report Type: Report from Study
  Country: AT (occurrence: AT)
  Receive Date: 20240217
  Receipt Date: 20250628
  Transmission Date: 20250716
  Serious: Yes (Hospitalization, Other)
  Sender: CELLTRION
  Company Number: AT-CELLTRION INC.-2024AT003419

PATIENT

DRUGS (5)
  1. TRASTUZUMAB [Suspect]
     Active Substance: TRASTUZUMAB
     Indication: Breast cancer
     Route: 058
     Dates: start: 20230712
  2. PERTUZUMAB [Suspect]
     Active Substance: PERTUZUMAB
     Indication: Breast cancer
     Route: 058
     Dates: start: 20230712
  3. PERTUZUMAB [Suspect]
     Active Substance: PERTUZUMAB
     Route: 058
     Dates: start: 20231027
  4. ONTRUZANT [Suspect]
     Active Substance: TRASTUZUMAB-DTTB
     Indication: Breast cancer
     Route: 065
     Dates: start: 20240617
  5. ONTRUZANT [Suspect]
     Active Substance: TRASTUZUMAB-DTTB
     Route: 065
     Dates: start: 20240617

REACTIONS (14)
  - Abdominal pain [Recovered/Resolved]
  - Neuropathy peripheral [Unknown]
  - Radiation skin injury [Unknown]
  - Diarrhoea [Unknown]
  - Drug hypersensitivity [Unknown]
  - Fatigue [Unknown]
  - Hyperhidrosis [Unknown]
  - Lymph gland infection [Unknown]
  - Rhinitis [Unknown]
  - Vomiting [Unknown]
  - Vomiting [Unknown]
  - Intentional product use issue [Unknown]
  - Intentional product use issue [Unknown]
  - Product use issue [Unknown]

NARRATIVE: CASE EVENT DATE: 20240621
